FAERS Safety Report 20325750 (Version 4)
Quarter: 2022Q3

REPORT INFORMATION
  Report Type: Spontaneous
  Country: GB (occurrence: GB)
  Receive Date: 20220112
  Receipt Date: 20220705
  Transmission Date: 20221027
  Serious: Yes (Life-Threatening, Hospitalization, Disabling, Other)
  Sender: FDA-Public Use
  Company Number: GB-SUN PHARMACEUTICAL INDUSTRIES LTD-2021RR-323424

PATIENT
  Age: 29 Year
  Sex: Female

DRUGS (21)
  1. CODEINE [Suspect]
     Active Substance: CODEINE
     Indication: Pelvic pain
     Dosage: UNK, QID ()
     Route: 048
  2. CODEINE [Suspect]
     Active Substance: CODEINE
     Indication: Pelvic pain
     Dosage: 4 MG, QD
     Route: 048
  3. CODEINE [Suspect]
     Active Substance: CODEINE
     Dosage: 16 MG, QD
     Route: 048
  4. ACETAMINOPHEN [Suspect]
     Active Substance: ACETAMINOPHEN
     Indication: Pelvic pain
     Dosage: 4 MG, QD
     Route: 048
  5. ACETAMINOPHEN [Suspect]
     Active Substance: ACETAMINOPHEN
     Dosage: 16 MILLIGRAM, UP TO FOUR DOSES PER DAY
     Route: 048
  6. COCODAMOL [Suspect]
     Active Substance: ACETAMINOPHEN\CODEINE PHOSPHATE
     Indication: Pelvic girdle pain
     Dosage: 4, QID, GESTATION PERIOD: 2 (TRIMESTER)
     Route: 048
  7. COCODAMOL [Suspect]
     Active Substance: ACETAMINOPHEN\CODEINE PHOSPHATE
     Indication: Pelvic pain
     Dosage: 4, MILLIGRAM, QD, GESTATION PERIOD AT TIME OF EXPOSURE: 2 TRIMESTER
     Route: 048
  8. ACETAMINOPHEN [Suspect]
     Active Substance: ACETAMINOPHEN
     Indication: Product used for unknown indication
     Dosage: 4 MILLIGRAM, DAILY, FOUR TIMES/DAY
     Route: 048
  9. PERFALGAN [Suspect]
     Active Substance: ACETAMINOPHEN
     Indication: Pelvic pain
     Dosage: UNK UP TO FOUR TIMES A DAY
     Route: 065
  10. PERFALGAN [Suspect]
     Active Substance: ACETAMINOPHEN
     Dosage: UNK
     Route: 065
  11. CETIRIZINE HYDROCHLORIDE [Suspect]
     Active Substance: CETIRIZINE HYDROCHLORIDE
     Indication: Product used for unknown indication
     Dosage: 10 MILLIGRAM, QD
     Route: 048
     Dates: start: 20180528, end: 20180601
  12. FLUOXETINE [Concomitant]
     Active Substance: FLUOXETINE HYDROCHLORIDE
     Indication: Product used for unknown indication
     Dosage: UNK ()
     Route: 065
  13. FLUOXETINE [Concomitant]
     Active Substance: FLUOXETINE HYDROCHLORIDE
     Dosage: UNK
     Route: 064
  14. FLUOXETINE [Concomitant]
     Active Substance: FLUOXETINE HYDROCHLORIDE
     Dosage: UNK
     Route: 065
  15. METRONIDAZOLE [Concomitant]
     Active Substance: METRONIDAZOLE
     Indication: Pyelonephritis
     Dosage: UNK
     Route: 064
  16. METRONIDAZOLE [Concomitant]
     Active Substance: METRONIDAZOLE
     Dosage: UNK
     Route: 065
  17. CEPHRADINE [Concomitant]
     Active Substance: CEPHRADINE
     Indication: Product used for unknown indication
     Dosage: UNK
     Route: 065
  18. CEPHRADINE [Concomitant]
     Active Substance: CEPHRADINE
     Dosage: UNK ()
     Route: 064
  19. ENOXAPARIN [Concomitant]
     Active Substance: ENOXAPARIN
     Indication: Product used for unknown indication
     Dosage: UNK
     Route: 065
  20. ENOXAPARIN [Concomitant]
     Active Substance: ENOXAPARIN
     Dosage: UNK
     Route: 064
  21. MORPHINE HYDROCHLORIDE [Concomitant]
     Active Substance: MORPHINE HYDROCHLORIDE
     Indication: Product used for unknown indication
     Dosage: UNK
     Route: 065

REACTIONS (24)
  - Depressed level of consciousness [Unknown]
  - Fear of death [Unknown]
  - Gait inability [Unknown]
  - Malaise [Recovered/Resolved]
  - Live birth [Unknown]
  - Exposure during pregnancy [Recovered/Resolved]
  - Accidental overdose [Recovered/Resolved]
  - Asthenia [Unknown]
  - Maternal exposure during pregnancy [Recovered/Resolved]
  - Asthenopia [Unknown]
  - Incorrect product administration duration [Unknown]
  - Liver disorder [Recovered/Resolved]
  - Crying [Unknown]
  - Feeling guilty [Unknown]
  - Caesarean section [Unknown]
  - Fear [Unknown]
  - Hepatic failure [Recovered/Resolved]
  - Uterine hypertonus [Unknown]
  - Premature labour [Unknown]
  - Foetal monitoring abnormal [Unknown]
  - Developmental delay [Unknown]
  - Consciousness fluctuating [Unknown]
  - Hepatotoxicity [Recovered/Resolved with Sequelae]
  - Mania [Recovering/Resolving]

NARRATIVE: CASE EVENT DATE: 20180601
